FAERS Safety Report 19844950 (Version 1)
Quarter: 2021Q3

REPORT INFORMATION
  Report Type: Spontaneous
  Country: DE (occurrence: DE)
  Receive Date: 20210917
  Receipt Date: 20210917
  Transmission Date: 20211014
  Serious: Yes (Hospitalization)
  Sender: FDA-Public Use
  Company Number: DE-BAUSCH-BL-2021-030777

PATIENT
  Age: 82 Year
  Sex: Female

DRUGS (22)
  1. DEXAMETHASONE. [Suspect]
     Active Substance: DEXAMETHASONE
     Dosage: 8 MILLIGRAM,1 WEEKS
     Route: 048
     Dates: start: 20200908, end: 20200928
  2. DEXAMETHASONE. [Suspect]
     Active Substance: DEXAMETHASONE
     Route: 048
     Dates: start: 20200702, end: 20200708
  3. DEXAMETHASONE. [Suspect]
     Active Substance: DEXAMETHASONE
     Route: 048
     Dates: start: 20200901, end: 20200907
  4. DEXAMETHASONE. [Suspect]
     Active Substance: DEXAMETHASONE
     Dosage: 2.2857 MILLIGRAM, 1WEEKS
     Route: 048
     Dates: start: 20200713, end: 20200802
  5. DEXAMETHASONE. [Suspect]
     Active Substance: DEXAMETHASONE
     Dosage: 2.2857 MILLIGRAM, 1 WEEKS
     Route: 048
     Dates: start: 20200611, end: 20200701
  6. DARATUMUMAB [Suspect]
     Active Substance: DARATUMUMAB
     Indication: HYPOTHYROIDISM
     Route: 041
     Dates: start: 20200801, end: 20201124
  7. REVLIMID [Suspect]
     Active Substance: LENALIDOMIDE
     Dosage: 15 MILLIGRAM ,1 DAYS
     Route: 048
     Dates: start: 20200908, end: 20200928
  8. DARATUMUMAB [Suspect]
     Active Substance: DARATUMUMAB
     Dosage: 116.5714 MILLIGRAM, 1 WEEKS
     Route: 041
     Dates: start: 20200611, end: 20200804
  9. REVLIMID [Suspect]
     Active Substance: LENALIDOMIDE
     Dosage: 15 MILLIGRAM , 1 DAYS
     Route: 048
     Dates: start: 20200811, end: 20200831
  10. DEXAMETHASONE. [Suspect]
     Active Substance: DEXAMETHASONE
     Indication: HYPOTHYROIDISM
     Route: 048
     Dates: start: 20200803, end: 20200810
  11. REVLIMID [Suspect]
     Active Substance: LENALIDOMIDE
     Route: 048
     Dates: start: 20200929, end: 20201005
  12. DEXAMETHASONE. [Suspect]
     Active Substance: DEXAMETHASONE
     Dosage: 2.2857 MILLIGRAM,1 WEEKS
     Route: 048
     Dates: start: 20200811, end: 20200831
  13. DEXAMETHASONE. [Suspect]
     Active Substance: DEXAMETHASONE
     Route: 048
     Dates: start: 20200709, end: 20200712
  14. REVLIMID [Suspect]
     Active Substance: LENALIDOMIDE
     Route: 048
     Dates: start: 20200702, end: 20200708
  15. REVLIMID [Suspect]
     Active Substance: LENALIDOMIDE
     Dosage: 15 MILLIGRAM,1 DAYS
     Route: 048
     Dates: start: 20201006, end: 20201026
  16. DEXAMETHASONE. [Suspect]
     Active Substance: DEXAMETHASONE
     Route: 048
     Dates: start: 20200929, end: 20201005
  17. REVLIMID [Suspect]
     Active Substance: LENALIDOMIDE
     Dosage: 15 MILLIGRAM , 1 DAYS
     Route: 048
     Dates: start: 20200611, end: 20200701
  18. DEXAMETHASONE. [Suspect]
     Active Substance: DEXAMETHASONE
     Dosage: 1.1429 MILLIGRAM,1 WEEKS
     Route: 048
     Dates: start: 20201006, end: 20201026
  19. REVLIMID [Suspect]
     Active Substance: LENALIDOMIDE
     Indication: HYPOTHYROIDISM
     Route: 048
     Dates: start: 20200901, end: 20200907
  20. REVLIMID [Suspect]
     Active Substance: LENALIDOMIDE
     Dosage: 15 MILLIGRAM
     Route: 048
     Dates: start: 20200713, end: 20200821
  21. REVLIMID [Suspect]
     Active Substance: LENALIDOMIDE
     Route: 048
     Dates: start: 20200803, end: 20200810
  22. REVLIMID [Suspect]
     Active Substance: LENALIDOMIDE
     Route: 048
     Dates: start: 20200709, end: 20200712

REACTIONS (1)
  - Atrioventricular block [Recovered/Resolved]

NARRATIVE: CASE EVENT DATE: 20210805
